FAERS Safety Report 23201090 (Version 2)
Quarter: 2023Q4

REPORT INFORMATION
  Report Type: Spontaneous
  Country: US (occurrence: US)
  Receive Date: 20231118
  Receipt Date: 20231227
  Transmission Date: 20240109
  Serious: Yes (Death)
  Sender: FDA-Public Use
  Company Number: US-PERRIGO-23US013012

PATIENT
  Age: 26 Year
  Sex: Male
  Weight: 89.342 kg

DRUGS (2)
  1. UNSPECIFIED INGREDIENT [Suspect]
     Active Substance: UNSPECIFIED INGREDIENT
     Indication: Completed suicide
     Dosage: UNKNOWN, UNKNOWN
     Route: 048
  2. MELATONIN [Suspect]
     Active Substance: MELATONIN
     Indication: Completed suicide
     Dosage: UNK
     Route: 048

REACTIONS (2)
  - Toxicity to various agents [Fatal]
  - Completed suicide [Fatal]

NARRATIVE: CASE EVENT DATE: 20230627
